FAERS Safety Report 9218276 (Version 2)
Quarter: 2013Q4

REPORT INFORMATION
  Report Type: Spontaneous
  Country: US (occurrence: US)
  Receive Date: 20130409
  Receipt Date: 20131126
  Transmission Date: 20140711
  Serious: Yes (Death, Other)
  Sender: FDA-Public Use
  Company Number: US-009507513-1304USA002276

PATIENT
  Age: 61 Year
  Sex: 0

DRUGS (8)
  1. SINGULAIR [Suspect]
     Route: 048
  2. PRINIVIL [Suspect]
     Route: 048
  3. ACETAMINOPHEN [Suspect]
     Route: 048
  4. ACETAMINOPHEN [Suspect]
     Dosage: UNK
  5. PROCHLORPERAZINE [Suspect]
     Route: 048
  6. QUETIAPINE FUMARATE [Suspect]
     Route: 048
  7. ZINC SALICYLATE [Suspect]
  8. [THERAPY UNSPECIFIED] [Suspect]
     Route: 048

REACTIONS (2)
  - Completed suicide [Fatal]
  - Toxicity to various agents [Unknown]
